FAERS Safety Report 7306438-7 (Version None)
Quarter: 2011Q1

REPORT INFORMATION
  Report Type: 
  Country: None (occurrence: None)
  Receive Date: 20110210
  Receipt Date: 20110126
  Transmission Date: 20110831
  Serious: Yes (Other)
  Sender: FDA-Public Use
  Company Number: AUR-APL-2011-00354

PATIENT
  Age: 36 Year
  Sex: Male
  Weight: 85 kg

DRUGS (2)
  1. MIRTAZAPINE [Suspect]
     Indication: ANXIETY
     Dosage: 30MG-ORAL
     Route: 048
     Dates: start: 20110112, end: 20110114
  2. DIAZEPAM [Concomitant]

REACTIONS (4)
  - PARANOIA [None]
  - ILLUSION [None]
  - PERSECUTORY DELUSION [None]
  - PSYCHOTIC DISORDER [None]
